FAERS Safety Report 5205425-2 (Version None)
Quarter: 2006Q4

REPORT INFORMATION
  Report Type: 
  Country: None (occurrence: None)
  Receive Date: 20061027
  Receipt Date: 20060605
  Transmission Date: 20070319
  Serious: Yes (Other)
  Sender: FDA-Public Use
  Company Number: HQWYE009107JUN06

PATIENT
  Age: 75 Year
  Sex: Female
  Weight: 58.57 kg

DRUGS (4)
  1. PREMARIN [Suspect]
     Indication: HOT FLUSH
     Dosage: 0.625 MG 1X PER 1 DAY, ORAL
     Route: 048
     Dates: start: 19600101
  2. PREMARIN [Suspect]
     Indication: OSTEOPOROSIS
     Dosage: 0.625 MG 1X PER 1 DAY, ORAL
     Route: 048
     Dates: start: 19600101
  3. CLIDINIUM (CLIDINIUM) [Concomitant]
  4. ZANTAC [Concomitant]

REACTIONS (3)
  - FLUSHING [None]
  - PHARMACEUTICAL PRODUCT COMPLAINT [None]
  - STOMACH DISCOMFORT [None]
